FAERS Safety Report 8479135-2 (Version None)
Quarter: 2012Q2

REPORT INFORMATION
  Report Type: 
  Country: None (occurrence: None)
  Receive Date: 20120629
  Receipt Date: 20090331
  Transmission Date: 20120825
  Serious: Yes (Other)
  Sender: FDA-Public Use
  Company Number: TR-ROCHE-1082759

PATIENT
  Sex: Female

DRUGS (1)
  1. XOLAIR [Suspect]
     Indication: ASTHMA
     Route: 058
     Dates: start: 20080701

REACTIONS (4)
  - HYPERSENSITIVITY [None]
  - RHINORRHOEA [None]
  - SNEEZING [None]
  - SEASONAL ALLERGY [None]
